FAERS Safety Report 5455010-2 (Version None)
Quarter: 2007Q3

REPORT INFORMATION
  Report Type: 
  Country: None (occurrence: None)
  Receive Date: 20070913
  Receipt Date: 20070830
  Transmission Date: 20080115
  Serious: Yes (Death)
  Sender: FDA-Public Use
  Company Number: 2007S1004268

PATIENT
  Age: 19 Year
  Sex: Female

DRUGS (2)
  1. CYSTAGON [Suspect]
     Indication: CYSTINOSIS
     Dosage: 150 MG; ORAL
     Route: 048
     Dates: start: 19960116
  2. IMMUNOSUPPRESSIVE AGENTS [Concomitant]

REACTIONS (5)
  - HAEMORRHAGE [None]
  - LYMPHOMA [None]
  - OVARIAN CANCER [None]
  - PERITONEAL DISORDER [None]
  - STEM CELL TRANSPLANT [None]
